FAERS Safety Report 10450288 (Version 2)
Quarter: 2016Q1

REPORT INFORMATION
  Report Type: Spontaneous
  Country: DK (occurrence: DK)
  Receive Date: 20140912
  Receipt Date: 20160120
  Transmission Date: 20160525
  Serious: Yes (Other)
  Sender: FDA-Public Use
  Company Number: DK-WATSON-2014-19713

PATIENT
  Age: 26 Year
  Sex: Male

DRUGS (2)
  1. TRIMONIL [Concomitant]
     Active Substance: CARBAMAZEPINE
     Indication: MYOCLONIC EPILEPSY
     Dosage: UNK
     Route: 065
  2. TOPIRAMATE (UNKNOWN) [Suspect]
     Active Substance: TOPIRAMATE
     Indication: MYOCLONIC EPILEPSY
     Dosage: 300 MG, BID
     Route: 048
     Dates: start: 20120214, end: 20130326

REACTIONS (3)
  - Product substitution issue [Recovered/Resolved]
  - Myoclonic epilepsy [Recovered/Resolved]
  - Drug ineffective [Unknown]

NARRATIVE: CASE EVENT DATE: 2012
